FAERS Safety Report 13386811 (Version 3)
Quarter: 2017Q2

REPORT INFORMATION
  Report Type: Spontaneous
  Country: US (occurrence: US)
  Receive Date: 20170330
  Receipt Date: 20170519
  Transmission Date: 20170830
  Serious: No
  Sender: FDA-Public Use
  Company Number: US-PFIZER INC-2017139806

PATIENT
  Age: 62 Year
  Sex: Female
  Weight: 66.22 kg

DRUGS (2)
  1. GABAPENTIN. [Suspect]
     Active Substance: GABAPENTIN
     Dosage: 300 MG, 2X/DAY
     Route: 048
     Dates: start: 20170309, end: 20170316
  2. GABAPENTIN. [Suspect]
     Active Substance: GABAPENTIN
     Indication: DIABETIC NEUROPATHY
     Dosage: 300 MG, 2X/DAY, (ONE CAPSULE IN THE MORNING AND ONE CAPSULE IN EVENING)
     Route: 048
     Dates: start: 20170309, end: 20170322

REACTIONS (4)
  - Drug hypersensitivity [Unknown]
  - Sedation [Recovered/Resolved]
  - Product use in unapproved indication [Unknown]
  - Malaise [Unknown]

NARRATIVE: CASE EVENT DATE: 20170309
